FAERS Safety Report 22282370 (Version 1)
Quarter: 2023Q2

REPORT INFORMATION
  Report Type: Spontaneous
  Country: US (occurrence: US)
  Receive Date: 20230504
  Receipt Date: 20230504
  Transmission Date: 20230722
  Serious: Yes (Hospitalization)
  Sender: FDA-Public Use
  Company Number: US-LEO Pharma-351681

PATIENT
  Sex: Female
  Weight: 91 kg

DRUGS (23)
  1. MITIGARE [Concomitant]
     Active Substance: COLCHICINE
     Indication: Product used for unknown indication
     Dosage: DOSAGE : ?REASON LOT NO UNKNOWN : UNKNOWN?GIVEN DURATION : ?STARTED - PARTIAL : ?STOPPED - PARTIAL :
  2. LINZESS [Concomitant]
     Active Substance: LINACLOTIDE
     Indication: Product used for unknown indication
     Dosage: DOSAGE : ?REASON LOT NO UNKNOWN : UNKNOWN?GIVEN DURATION : ?STARTED - PARTIAL : ?STOPPED - PARTIAL :
  3. Fluocinolone Acetonide - 0.01 % [Concomitant]
     Indication: Product used for unknown indication
     Dosage: DOSAGE : ?REASON LOT NO UNKNOWN : UNKNOWN?GIVEN DURATION : ?STARTED - PARTIAL : ?STOPPED - PARTIAL :
  4. EPLERENONE [Concomitant]
     Active Substance: EPLERENONE
     Indication: Product used for unknown indication
     Dosage: DOSAGE : ?REASON LOT NO UNKNOWN : UNKNOWN?GIVEN DURATION : ?STARTED - PARTIAL : ?STOPPED - PARTIAL :
  5. PANTOPRAZOLE [Concomitant]
     Active Substance: PANTOPRAZOLE
     Indication: Product used for unknown indication
     Dosage: DOSAGE : ?REASON LOT NO UNKNOWN : UNKNOWN?GIVEN DURATION : ?STARTED - PARTIAL : ?STOPPED - PARTIAL :
  6. DOFETILIDE [Concomitant]
     Active Substance: DOFETILIDE
     Indication: Product used for unknown indication
     Dosage: DOSAGE : ?REASON LOT NO UNKNOWN : UNKNOWN?GIVEN DURATION : ?STARTED - PARTIAL : ?STOPPED - PARTIAL :
  7. Clobetasol Propionate - 0.05 % [Concomitant]
     Indication: Product used for unknown indication
     Dosage: DOSAGE : ?REASON LOT NO UNKNOWN : UNKNOWN?GIVEN DURATION : ?STARTED - PARTIAL : ?STOPPED - PARTIAL :
  8. ELIQUIS [Concomitant]
     Active Substance: APIXABAN
     Indication: Product used for unknown indication
     Dosage: DOSAGE : ?REASON LOT NO UNKNOWN : UNKNOWN?GIVEN DURATION : ?STARTED - PARTIAL : ?STOPPED - PARTIAL :
  9. METOPROLOL [Concomitant]
     Active Substance: METOPROLOL
     Indication: Product used for unknown indication
     Dosage: DOSAGE : ?REASON LOT NO UNKNOWN : UNKNOWN?GIVEN DURATION : ?STARTED - PARTIAL : ?STOPPED - PARTIAL :
  10. ATORVASTATIN [Concomitant]
     Active Substance: ATORVASTATIN
     Indication: Product used for unknown indication
     Dosage: DOSAGE : ?REASON LOT NO UNKNOWN : UNKNOWN?GIVEN DURATION : ?STARTED - PARTIAL : ?STOPPED - PARTIAL :
  11. FEBUXOSTAT [Concomitant]
     Active Substance: FEBUXOSTAT
     Indication: Product used for unknown indication
     Dosage: DOSAGE : ?REASON LOT NO UNKNOWN : UNKNOWN?GIVEN DURATION : ?STARTED - PARTIAL : ?STOPPED - PARTIAL :
  12. CALCITRIOL [Concomitant]
     Active Substance: CALCITRIOL
     Indication: Product used for unknown indication
     Dosage: DOSAGE : ?REASON LOT NO UNKNOWN : UNKNOWN?GIVEN DURATION : ?STARTED - PARTIAL : ?STOPPED - PARTIAL :
  13. OXYCODONE [Concomitant]
     Active Substance: OXYCODONE
     Indication: Product used for unknown indication
     Dosage: DOSAGE : ?REASON LOT NO UNKNOWN : UNKNOWN?GIVEN DURATION : ?STARTED - PARTIAL : ?STOPPED - PARTIAL :
  14. TORSEMIDE [Concomitant]
     Active Substance: TORSEMIDE
     Indication: Product used for unknown indication
     Dosage: DOSAGE : ?REASON LOT NO UNKNOWN : UNKNOWN?GIVEN DURATION : ?STARTED - PARTIAL : ?STOPPED - PARTIAL :
  15. JARDIANCE [Concomitant]
     Active Substance: EMPAGLIFLOZIN
     Indication: Product used for unknown indication
     Dosage: DOSAGE : ?REASON LOT NO UNKNOWN : UNKNOWN?GIVEN DURATION : ?STARTED - PARTIAL : ?STOPPED - PARTIAL :
  16. SYNTHROID [Concomitant]
     Active Substance: LEVOTHYROXINE SODIUM
     Indication: Product used for unknown indication
     Dosage: DOSAGE : ?REASON LOT NO UNKNOWN : UNKNOWN?GIVEN DURATION : ?STARTED - PARTIAL : ?STOPPED - PARTIAL :
  17. DEVICE [Suspect]
     Active Substance: DEVICE
     Indication: Dermatitis atopic
  18. MOUNJARO [Concomitant]
     Active Substance: TIRZEPATIDE
     Indication: Product used for unknown indication
     Dosage: DOSAGE : ?REASON LOT NO UNKNOWN : UNKNOWN?GIVEN DURATION : ?STARTED - PARTIAL : ?STOPPED - PARTIAL :
  19. HYDROXYZINE [Concomitant]
     Active Substance: HYDROXYZINE HYDROCHLORIDE
     Indication: Product used for unknown indication
     Dosage: DOSAGE : ?REASON LOT NO UNKNOWN : UNKNOWN?GIVEN DURATION : ?STARTED - PARTIAL : ?STOPPED - PARTIAL :
  20. DUPIXENT [Concomitant]
     Active Substance: DUPILUMAB
     Indication: Product used for unknown indication
     Dosage: DOSAGE : ?REASON LOT NO UNKNOWN : UNKNOWN?GIVEN DURATION : ?STARTED - PARTIAL : ?STOPPED - PARTIAL :
  21. ADBRY [Suspect]
     Active Substance: TRALOKINUMAB-LDRM
     Indication: Dermatitis atopic
     Dosage: DOSAGE :  THEN AT 2 SYRINGES EVERY OTHER WEEK THEREAFTER STARTING ON DAY 15
     Route: 058
  22. ADBRY [Suspect]
     Active Substance: TRALOKINUMAB-LDRM
     Indication: Dermatitis atopic
     Dosage: DOSAGE : 4 SYRINGES UNDER THE SKIN ON DAY 1
     Route: 058
  23. HUMALOG [Concomitant]
     Active Substance: INSULIN LISPRO
     Indication: Product used for unknown indication
     Dosage: DOSAGE : ?REASON LOT NO UNKNOWN : UNKNOWN?GIVEN DURATION : ?STARTED - PARTIAL : ?STOPPED - PARTIAL :

REACTIONS (1)
  - Liver disorder [Unknown]
